FAERS Safety Report 12843240 (Version 1)
Quarter: 2016Q4

REPORT INFORMATION
  Report Type: Report from Study
  Country: DE (occurrence: DE)
  Receive Date: 20161013
  Receipt Date: 20161013
  Transmission Date: 20170207
  Serious: No
  Sender: FDA-Public Use
  Company Number: DE-CELGENEUS-THADE200700041

PATIENT
  Age: 36 Year
  Sex: Male
  Weight: 90 kg

DRUGS (4)
  1. RILUTEK [Concomitant]
     Active Substance: RILUZOLE
     Indication: AMYOTROPHIC LATERAL SCLEROSIS
     Route: 048
     Dates: start: 20050404
  2. IBUPROFEN. [Concomitant]
     Active Substance: IBUPROFEN
     Indication: ARTHRALGIA
     Route: 065
     Dates: start: 20060410
  3. NOVALGIN [Concomitant]
     Active Substance: METAMIZOLE SODIUM
     Indication: MIGRAINE
     Route: 065
     Dates: start: 19890615
  4. THALIDOMIDE PHARMION [Suspect]
     Active Substance: THALIDOMIDE
     Indication: AMYOTROPHIC LATERAL SCLEROSIS
     Dosage: GRADUALLY INCREASED FROM 100 MG/DAY TO 400 MG/DAY
     Route: 048
     Dates: start: 20060228, end: 20060727

REACTIONS (5)
  - Asthenia [Recovered/Resolved]
  - Bradycardia [Recovered/Resolved]
  - Rash [Recovered/Resolved]
  - Diarrhoea [Recovered/Resolved]
  - Dizziness [Recovered/Resolved]

NARRATIVE: CASE EVENT DATE: 20060324
